FAERS Safety Report 13521178 (Version 1)
Quarter: 2017Q2

REPORT INFORMATION
  Report Type: Spontaneous
  Country: US (occurrence: US)
  Receive Date: 20170505
  Receipt Date: 20170505
  Transmission Date: 20170830
  Serious: Yes (Hospitalization)
  Sender: FDA-Public Use
  Company Number: None

PATIENT
  Age: 67 Year
  Sex: Male
  Weight: 67 kg

DRUGS (8)
  1. PREDNISONE. [Concomitant]
     Active Substance: PREDNISONE
  2. PROCHLORPERAZINE (COMPAZINE) [Concomitant]
  3. SPIRONOLACTONE (ALDACTONE) [Concomitant]
  4. LIPITOR [Concomitant]
     Active Substance: ATORVASTATIN CALCIUM
  5. PROTONIX [Concomitant]
     Active Substance: PANTOPRAZOLE SODIUM
  6. PEMBROLIZUMAB. [Suspect]
     Active Substance: PEMBROLIZUMAB
     Indication: MESOTHELIOMA
     Dosage: ?          OTHER FREQUENCY:EVERY 3 WEEKS;?
     Route: 041
     Dates: start: 20160921, end: 20161109
  7. LOVENOX [Concomitant]
     Active Substance: ENOXAPARIN SODIUM
  8. TAB-A-VITE MULTIVITAMIN (MULTI-DAY) [Concomitant]

REACTIONS (4)
  - Myocarditis [None]
  - Acute myocardial infarction [None]
  - Vasculitis [None]
  - Cardiovascular disorder [None]

NARRATIVE: CASE EVENT DATE: 20170426
